FAERS Safety Report 8914640 (Version 2)
Quarter: 2012Q4

REPORT INFORMATION
  Report Type: Report from Study
  Country: DE (occurrence: DE)
  Receive Date: 20121119
  Receipt Date: 20121226
  Transmission Date: 20130627
  Serious: Yes (Life-Threatening)
  Sender: FDA-Public Use
  Company Number: DE-ROCHE-1154638

PATIENT
  Sex: Male
  Weight: 91 kg

DRUGS (1)
  1. TOCILIZUMAB [Suspect]
     Indication: JUVENILE ARTHRITIS
     Route: 065
     Dates: start: 20110830

REACTIONS (2)
  - Respiratory failure [Recovered/Resolved]
  - Pneumocystis jiroveci pneumonia [Recovered/Resolved]
